FAERS Safety Report 11299414 (Version 2)
Quarter: 2015Q4

REPORT INFORMATION
  Report Type: Spontaneous
  Country: US (occurrence: US)
  Receive Date: 20150722
  Receipt Date: 20151120
  Transmission Date: 20160304
  Serious: No
  Sender: FDA-Public Use
  Company Number: US-ELI_LILLY_AND_COMPANY-US201210003089

PATIENT
  Sex: Female
  Weight: 42.18 kg

DRUGS (3)
  1. FORTEO [Suspect]
     Active Substance: TERIPARATIDE
     Indication: OSTEOPOROSIS
     Dosage: 20 UG, QD
     Dates: start: 201210
  2. BONIVA [Concomitant]
     Active Substance: IBANDRONATE SODIUM
     Dosage: 1 DF, MONTHLY (1/M)
  3. EVISTA [Suspect]
     Active Substance: RALOXIFENE HYDROCHLORIDE
     Indication: OSTEOPOROSIS
     Dosage: 60 MG, QD
     Dates: start: 201004, end: 201204

REACTIONS (14)
  - Malaise [Unknown]
  - Pain in extremity [Unknown]
  - Sleep disorder due to general medical condition, insomnia type [Unknown]
  - Nausea [Unknown]
  - Decreased activity [Unknown]
  - Dyspepsia [Recovered/Resolved]
  - Drug ineffective [Unknown]
  - Pruritus [Unknown]
  - Injection site pain [Recovered/Resolved]
  - Pelvic pain [Unknown]
  - Arthralgia [Recovering/Resolving]
  - Listless [Unknown]
  - Gastrooesophageal reflux disease [Recovered/Resolved]
  - Arthralgia [Unknown]

NARRATIVE: CASE EVENT DATE: 2012
